FAERS Safety Report 14820362 (Version 5)
Quarter: 2018Q3

REPORT INFORMATION
  Report Type: Report from Study
  Country: None (occurrence: TW)
  Receive Date: 20180427
  Receipt Date: 20180821
  Transmission Date: 20181010
  Serious: Yes (Hospitalization, Other)
  Sender: FDA-Public Use
  Company Number: TW-ABBVIE-18K-153-2287161-00

PATIENT
  Age: 27 Year
  Sex: Female
  Weight: 45 kg

DRUGS (9)
  1. LASIX [Concomitant]
     Active Substance: FUROSEMIDE
     Indication: CROHN^S DISEASE
     Route: 048
     Dates: start: 20180326, end: 20180402
  2. PENTASA [Concomitant]
     Active Substance: MESALAMINE
     Indication: CROHN^S DISEASE
     Dosage: 2 STRENGTH
     Dates: start: 20170814
  3. IMURAN [Concomitant]
     Active Substance: AZATHIOPRINE
     Indication: CROHN^S DISEASE
     Route: 048
     Dates: start: 20171002, end: 20171029
  4. HUMIRA [Suspect]
     Active Substance: ADALIMUMAB
     Indication: CROHN^S DISEASE
     Dosage: LOADING DOSE
     Route: 058
     Dates: start: 20180224, end: 20180224
  5. HUMIRA [Suspect]
     Active Substance: ADALIMUMAB
     Route: 058
     Dates: start: 2018, end: 2018
  6. PENTASA [Concomitant]
     Active Substance: MESALAMINE
     Route: 048
     Dates: start: 20180813
  7. HUMIRA [Suspect]
     Active Substance: ADALIMUMAB
     Route: 058
     Dates: start: 2018, end: 20180312
  8. HUMIRA [Suspect]
     Active Substance: ADALIMUMAB
     Indication: CROHN^S DISEASE
     Route: 058
     Dates: start: 20180813
  9. IMURAN [Concomitant]
     Active Substance: AZATHIOPRINE
     Route: 048
     Dates: start: 20171030, end: 20180312

REACTIONS (17)
  - Candida infection [Recovering/Resolving]
  - Pyrexia [Recovered/Resolved]
  - Pyelonephritis acute [Recovering/Resolving]
  - Enterovesical fistula [Recovering/Resolving]
  - Renal disorder [Recovering/Resolving]
  - Sepsis [Recovering/Resolving]
  - Post procedural haemorrhage [Recovering/Resolving]
  - Ureterolithiasis [Recovering/Resolving]
  - Haemoglobin decreased [Recovering/Resolving]
  - White blood cell count decreased [Recovering/Resolving]
  - Urinary tract infection [Recovering/Resolving]
  - Ureteral disorder [Recovering/Resolving]
  - Ureteric dilatation [Recovering/Resolving]
  - Pyrexia [Recovered/Resolved]
  - Microangiopathic haemolytic anaemia [Recovering/Resolving]
  - Disseminated intravascular coagulation [Recovering/Resolving]
  - Bladder hypertrophy [Recovering/Resolving]

NARRATIVE: CASE EVENT DATE: 20180312
